FAERS Safety Report 5040525-1 (Version None)
Quarter: 2006Q2

REPORT INFORMATION
  Report Type: 
  Country: None (occurrence: None)
  Receive Date: 20060630
  Receipt Date: 20060621
  Transmission Date: 20061013
  Serious: Yes (Hospitalization)
  Sender: FDA-Public Use
  Company Number: PR-ROCHE-452832

PATIENT
  Age: 58 Year
  Sex: Female

DRUGS (3)
  1. BONIVA [Suspect]
     Indication: OSTEOPOROSIS
     Route: 048
  2. LYRICA [Concomitant]
     Route: 048
  3. NEURONTIN [Concomitant]
     Route: 048

REACTIONS (1)
  - CONVULSION [None]
